FAERS Safety Report 14404464 (Version 1)
Quarter: 2018Q1

REPORT INFORMATION
  Report Type: Spontaneous
  Country: FR (occurrence: FR)
  Receive Date: 20180117
  Receipt Date: 20180117
  Transmission Date: 20180509
  Serious: Yes (Other)
  Sender: FDA-Public Use
  Company Number: FR-BRISTOL-MYERS SQUIBB COMPANY-BMS-2017-120521

PATIENT
  Age: 30 Year
  Sex: Female

DRUGS (1)
  1. SUSTIVA [Suspect]
     Active Substance: EFAVIRENZ
     Indication: ANTIRETROVIRAL THERAPY
     Dosage: 1 DF, UNK
     Route: 048
     Dates: start: 20051201

REACTIONS (3)
  - Product use issue [Unknown]
  - Maternal exposure during pregnancy [Recovered/Resolved]
  - Tuberculosis [Unknown]
